FAERS Safety Report 14731297 (Version 1)
Quarter: 2018Q2

REPORT INFORMATION
  Report Type: Spontaneous
  Country: RO (occurrence: RO)
  Receive Date: 20180407
  Receipt Date: 20180407
  Transmission Date: 20180711
  Serious: Yes (Death, Other)
  Sender: FDA-Public Use
  Company Number: RO-ROCHE-2101209

PATIENT
  Age: 75 Year
  Sex: Male

DRUGS (2)
  1. MABTHERA [Suspect]
     Active Substance: RITUXIMAB
     Indication: DIFFUSE LARGE B-CELL LYMPHOMA
     Dosage: CYCLES 3 AND 4 MABTHERA WAS ADMINISTERED SUBCUTANEOUS
     Route: 058
  2. MABTHERA [Suspect]
     Active Substance: RITUXIMAB
     Indication: DIFFUSE LARGE B-CELL LYMPHOMA
     Dosage: IN THE CYCLES 1 AND 2 MABTHERA WAS ADMINISTERED INTRAVENOUS
     Route: 042

REACTIONS (2)
  - Renal failure [Fatal]
  - Pneumonia [Unknown]
